FAERS Safety Report 19874806 (Version 1)
Quarter: 2021Q3

REPORT INFORMATION
  Report Type: Report from Study
  Country: None (occurrence: DE)
  Receive Date: 20210922
  Receipt Date: 20210922
  Transmission Date: 20211014
  Serious: Yes (Hospitalization)
  Sender: FDA-Public Use
  Company Number: DE-ABBVIE-21K-062-4090174-00

PATIENT
  Age: 80 Year
  Sex: Male
  Weight: 75 kg

DRUGS (16)
  1. IMBRUVICA [Suspect]
     Active Substance: IBRUTINIB
     Indication: WHITE BLOOD CELL COUNT INCREASED
     Route: 048
     Dates: start: 20191129, end: 20200408
  2. IMBRUVICA [Suspect]
     Active Substance: IBRUTINIB
     Route: 048
     Dates: start: 20200409
  3. CANDESARTAN. [Concomitant]
     Active Substance: CANDESARTAN
     Indication: PROPHYLAXIS
     Route: 065
     Dates: start: 20190606
  4. ALLOPURINOL. [Concomitant]
     Active Substance: ALLOPURINOL
     Indication: THERAPY RESPONDER
     Route: 065
     Dates: start: 20180425
  5. ACETYLSALICYLIC ACID [Concomitant]
     Active Substance: ASPIRIN
     Indication: THERAPY RESPONDER
     Route: 065
     Dates: start: 20180425
  6. TETRACYCLINE [Concomitant]
     Active Substance: TETRACYCLINE
     Indication: THERAPY RESPONDER
     Route: 065
     Dates: start: 20181206, end: 20181210
  7. AMLODIPINE [Concomitant]
     Active Substance: AMLODIPINE BESYLATE
     Indication: PROPHYLAXIS
     Route: 065
     Dates: start: 20190606
  8. IBRUTINIB [Suspect]
     Active Substance: IBRUTINIB
     Indication: WHITE BLOOD CELL COUNT INCREASED
     Route: 048
     Dates: start: 20180828, end: 20181205
  9. IBRUTINIB [Suspect]
     Active Substance: IBRUTINIB
     Route: 048
     Dates: start: 20181210, end: 20190114
  10. LEVOTHYROXINE. [Concomitant]
     Active Substance: LEVOTHYROXINE
     Indication: PROPHYLAXIS
     Dosage: 50/150 TAB
     Route: 065
     Dates: start: 20180425
  11. SALBUHEXAL [SALBUTAMOL] [Concomitant]
     Indication: PROPHYLAXIS
     Route: 065
     Dates: start: 20180425
  12. TORASEMID [Concomitant]
     Active Substance: TORSEMIDE
     Indication: THERAPY RESPONDER
     Route: 065
     Dates: start: 20180425
  13. IBRUTINIB [Suspect]
     Active Substance: IBRUTINIB
     Route: 048
     Dates: start: 20190115, end: 20191128
  14. SIMVASTATIN. [Concomitant]
     Active Substance: SIMVASTATIN
     Indication: PROPHYLAXIS
     Route: 065
     Dates: start: 20180425, end: 20190605
  15. VALSARTAN. [Concomitant]
     Active Substance: VALSARTAN
     Indication: THERAPY RESPONDER
     Dosage: 160 MG AND 25 MG
     Route: 065
     Dates: start: 20180425, end: 20190605
  16. SIMVASTATIN. [Concomitant]
     Active Substance: SIMVASTATIN
     Route: 065
     Dates: start: 20190606

REACTIONS (3)
  - Off label use [Unknown]
  - Inguinal hernia [Recovered/Resolved]
  - Product use in unapproved indication [Unknown]

NARRATIVE: CASE EVENT DATE: 20201215
